FAERS Safety Report 8541158-2 (Version None)
Quarter: 2012Q3

REPORT INFORMATION
  Report Type: 
  Country: None (occurrence: None)
  Receive Date: 20120716
  Receipt Date: 20120709
  Transmission Date: 20120928
  Serious: Yes (Other)
  Sender: FDA-Public Use
  Company Number: DSA_58439_2012

PATIENT
  Sex: Female

DRUGS (1)
  1. XENAZINE [Suspect]
     Indication: HUNTINGTON'S DISEASE
     Dosage: 12.5 MG EVERY MORNING, ORAL
     Route: 048
     Dates: start: 20120227, end: 20120618

REACTIONS (2)
  - CONDITION AGGRAVATED [None]
  - TREMOR [None]
